FAERS Safety Report 5024887-7 (Version None)
Quarter: 2006Q2

REPORT INFORMATION
  Report Type: 
  Country: None (occurrence: None)
  Receive Date: 20060607
  Receipt Date: 20060518
  Transmission Date: 20061013
  Serious: Yes (Disabling, Other)
  Sender: FDA-Public Use
  Company Number: SE200605003887

PATIENT
  Age: 71 Year
  Sex: Female

DRUGS (6)
  1. FORTEO [Suspect]
     Indication: OSTEOPOROSIS
     Dosage: 20 UG, DAILY (1/D), SUBCUTANEOUS
     Route: 058
     Dates: start: 20041029
  2. FORTEO [Concomitant]
  3. CALCIUM (CALCIUM) [Concomitant]
  4. ETALPHA (ALFACALCIDOL) [Concomitant]
  5. TEGRETOL [Concomitant]
  6. IRBESARTAN [Concomitant]

REACTIONS (2)
  - MALIGNANT MELANOMA [None]
  - SPINAL COLUMN STENOSIS [None]
